FAERS Safety Report 16780238 (Version 1)
Quarter: 2019Q3

REPORT INFORMATION
  Report Type: Report from Study
  Country: US (occurrence: US)
  Receive Date: 20190906
  Receipt Date: 20190906
  Transmission Date: 20191005
  Serious: No
  Sender: FDA-Public Use
  Company Number: US-EMD SERONO-9103454

PATIENT
  Sex: Male

DRUGS (2)
  1. MAVENCLAD [Suspect]
     Active Substance: CLADRIBINE
     Indication: MULTIPLE SCLEROSIS
     Dosage: FIRST WEEK THERAPY
     Route: 048
     Dates: start: 20190608
  2. MAVENCLAD [Suspect]
     Active Substance: CLADRIBINE
     Dosage: SECOND WEEK THERAPY, THE PATIENT WAS PRESCRIBED TO TAKE TWO TABLETS (PILLS) (EACH OF 10 MG) ON DAY 1
     Route: 048
     Dates: start: 20190705

REACTIONS (1)
  - Fatigue [Unknown]
